FAERS Safety Report 4988451-8 (Version None)
Quarter: 2006Q2

REPORT INFORMATION
  Report Type: 
  Country: None (occurrence: None)
  Receive Date: 20060502
  Receipt Date: 20060426
  Transmission Date: 20061013
  Serious: Yes (Hospitalization)
  Sender: FDA-Public Use
  Company Number: DE-SANOFI-SYNTHELABO-F01200601122

PATIENT
  Sex: Male

DRUGS (6)
  1. OXALIPLATIN [Suspect]
     Indication: COLORECTAL CANCER
     Dosage: EVERY 22 DAYS
     Route: 042
     Dates: start: 20060310, end: 20060310
  2. AVASTIN [Suspect]
     Route: 042
     Dates: start: 20060310, end: 20060310
  3. CAPECITABINE [Suspect]
     Route: 048
  4. LOPERAMID [Suspect]
     Dosage: UNK
     Route: 065
  5. PERENTEROL [Suspect]
     Dosage: UNK
     Route: 065
  6. CALCIUM/MAGNESIUM [Suspect]
     Dosage: UNK
     Route: 065

REACTIONS (1)
  - MYASTHENIC SYNDROME [None]
